FAERS Safety Report 4735072-8 (Version None)
Quarter: 2005Q3

REPORT INFORMATION
  Report Type: 
  Country: None (occurrence: None)
  Receive Date: 20050804
  Receipt Date: 20050518
  Transmission Date: 20060218
  Serious: Yes (Death, Other)
  Sender: FDA-Public Use
  Company Number: US-MERCK-0505USA02276

PATIENT
  Age: 41 Year
  Sex: Male
  Weight: 105 kg

DRUGS (7)
  1. ACTOS [Concomitant]
     Indication: DIABETES MELLITUS
     Route: 065
  2. GLUCOPHAGE [Concomitant]
     Indication: DIABETES MELLITUS
     Route: 065
  3. PRINIVIL [Concomitant]
     Route: 065
     Dates: start: 20000321, end: 20030523
  4. LIPITOR [Concomitant]
     Indication: BLOOD CHOLESTEROL INCREASED
     Route: 065
     Dates: start: 20010101, end: 20030523
  5. TRICOR [Concomitant]
     Indication: BLOOD CHOLESTEROL INCREASED
     Route: 065
     Dates: start: 20010101, end: 20030523
  6. VIOXX [Suspect]
     Indication: SHOULDER PAIN
     Route: 048
     Dates: start: 20010720, end: 20030523
  7. VIOXX [Suspect]
     Indication: TENDONITIS
     Route: 048
     Dates: start: 20010720, end: 20030523

REACTIONS (1)
  - MYOCARDIAL INFARCTION [None]
